FAERS Safety Report 6417390-0 (Version None)
Quarter: 2009Q4

REPORT INFORMATION
  Report Type: 
  Country: None (occurrence: None)
  Receive Date: 20091028
  Receipt Date: 20091019
  Transmission Date: 20100525
  Serious: Yes (Other)
  Sender: FDA-Public Use
  Company Number: GB-PFIZER INC-2009285768

PATIENT
  Age: 19 Year

DRUGS (1)
  1. DEPO-PROVERA [Suspect]
     Dosage: UNK

REACTIONS (4)
  - ERYTHEMA [None]
  - HEADACHE [None]
  - NAUSEA [None]
  - PRURITUS GENERALISED [None]
